FAERS Safety Report 20763018 (Version 7)
Quarter: 2023Q1

REPORT INFORMATION
  Report Type: Report from Study
  Country: JP (occurrence: JP)
  Receive Date: 20220428
  Receipt Date: 20230216
  Transmission Date: 20230417
  Serious: Yes (Hospitalization)
  Sender: FDA-Public Use
  Company Number: JP-BIOGEN-2022BI01112930

PATIENT
  Sex: Male

DRUGS (27)
  1. SPINRAZA [Suspect]
     Active Substance: NUSINERSEN
     Indication: Spinal muscular atrophy
     Route: 050
     Dates: start: 20171208, end: 20171208
  2. SPINRAZA [Suspect]
     Active Substance: NUSINERSEN
     Route: 050
     Dates: start: 20171222, end: 20171222
  3. SPINRAZA [Suspect]
     Active Substance: NUSINERSEN
     Route: 050
     Dates: start: 20180105, end: 20180105
  4. SPINRAZA [Suspect]
     Active Substance: NUSINERSEN
     Route: 050
     Dates: start: 20180209
  5. CARBOCYSTEINE [Concomitant]
     Active Substance: CARBOCYSTEINE
     Indication: Spinal muscular atrophy
     Route: 050
  6. AMBROXOL HYDROCHLORIDE [Concomitant]
     Active Substance: AMBROXOL HYDROCHLORIDE
     Indication: Spinal muscular atrophy
     Route: 050
  7. BIFIDOBACTERIUM SPP. [Concomitant]
     Active Substance: BIFIDOBACTERIUM SPP.
     Indication: Spinal muscular atrophy
     Route: 050
     Dates: end: 20181017
  8. TALTIRELIN [Concomitant]
     Active Substance: TALTIRELIN
     Indication: Spinal muscular atrophy
     Route: 050
  9. MIDAZOLAM [Concomitant]
     Active Substance: MIDAZOLAM
     Indication: Anaesthesia procedure
     Route: 050
     Dates: start: 20171208, end: 20171208
  10. MIDAZOLAM [Concomitant]
     Active Substance: MIDAZOLAM
     Route: 050
     Dates: start: 20171222, end: 20171222
  11. MIDAZOLAM [Concomitant]
     Active Substance: MIDAZOLAM
     Route: 050
     Dates: start: 20180105, end: 20180105
  12. MIDAZOLAM [Concomitant]
     Active Substance: MIDAZOLAM
     Route: 050
     Dates: start: 20180209, end: 20180209
  13. MIDAZOLAM [Concomitant]
     Active Substance: MIDAZOLAM
     Dosage: 2-4 MG/DAY
     Route: 050
     Dates: start: 20180615
  14. MIDAZOLAM [Concomitant]
     Active Substance: MIDAZOLAM
     Dosage: 30-3 MG/DAY
     Route: 050
     Dates: start: 20200312, end: 20200318
  15. KETALAR [Concomitant]
     Active Substance: KETAMINE HYDROCHLORIDE
     Indication: Anaesthesia procedure
     Route: 050
     Dates: start: 20171222, end: 20171222
  16. KETALAR [Concomitant]
     Active Substance: KETAMINE HYDROCHLORIDE
     Route: 050
     Dates: start: 20180105, end: 20180105
  17. KETALAR [Concomitant]
     Active Substance: KETAMINE HYDROCHLORIDE
     Route: 050
     Dates: start: 20180209, end: 20180209
  18. KETALAR [Concomitant]
     Active Substance: KETAMINE HYDROCHLORIDE
     Dosage: 5-10 MG/DAY
     Route: 050
     Dates: start: 20180615
  19. CLARITHROMYCIN [Concomitant]
     Active Substance: CLARITHROMYCIN
     Indication: Prophylaxis
     Route: 050
     Dates: start: 20181018
  20. MIYA-BM [Concomitant]
     Active Substance: CLOSTRIDIUM BUTYRICUM SPORES STRAIN M-55
     Indication: Prophylaxis
     Route: 050
     Dates: start: 20181018
  21. MAGNESIUM OXIDE [Concomitant]
     Active Substance: MAGNESIUM OXIDE
     Indication: Spinal muscular atrophy
     Dosage: 0.1-0.2 G/DAY
     Route: 050
     Dates: start: 20190418
  22. SOLU-MEDROL [Concomitant]
     Active Substance: METHYLPREDNISOLONE SODIUM SUCCINATE
     Indication: Encephalopathy
     Route: 050
     Dates: start: 20200312, end: 20200328
  23. CYANOCOBALAMIN\PYRIDOXAMINE HYDROCHLORIDE\THIAMINE HYDROCHLORIDE [Concomitant]
     Active Substance: CYANOCOBALAMIN\PYRIDOXAMINE HYDROCHLORIDE\THIAMINE HYDROCHLORIDE
     Indication: Encephalopathy
     Dosage: 1 KIT/DAY
     Route: 050
     Dates: start: 20200312, end: 20200401
  24. EDARAVONE [Concomitant]
     Active Substance: EDARAVONE
     Indication: Encephalopathy
     Route: 050
     Dates: start: 20200319, end: 20200326
  25. FOSPHENYTOIN SODIUM [Concomitant]
     Active Substance: FOSPHENYTOIN SODIUM
     Indication: Encephalopathy
     Dosage: 262.5-90 MG/DAY
     Route: 050
     Dates: start: 20200312, end: 20200403
  26. MOVICOL [Concomitant]
     Active Substance: POLYETHYLENE GLYCOL 3350\POTASSIUM CHLORIDE\SODIUM BICARBONATE\SODIUM CHLORIDE
     Indication: Spinal muscular atrophy
     Dosage: 2 PACK/DAY
     Route: 050
     Dates: start: 20200418
  27. AMLODIPINE [Concomitant]
     Active Substance: AMLODIPINE BESYLATE
     Indication: Spinal muscular atrophy
     Dosage: 1.25-6.25 MG/DAY
     Route: 050
     Dates: start: 20200321

REACTIONS (1)
  - Pancreatitis acute [Not Recovered/Not Resolved]
